FAERS Safety Report 8541498-7 (Version None)
Quarter: 2012Q3

REPORT INFORMATION
  Report Type: 
  Country: None (occurrence: None)
  Receive Date: 20120726
  Receipt Date: 20110923
  Transmission Date: 20120928
  Serious: No
  Sender: FDA-Public Use
  Company Number: US-ASTRAZENECA-2011SE57653

PATIENT
  Age: 53 Year
  Sex: Female
  Weight: 29.5 kg

DRUGS (9)
  1. HYDROXYZINE [Concomitant]
     Indication: ANXIETY
     Route: 048
  2. GABAPENTIN [Concomitant]
     Indication: NERVE INJURY
     Route: 048
  3. LEXAPRO [Concomitant]
     Indication: DEPRESSION
     Route: 048
  4. LORAZEPAM [Concomitant]
     Indication: ANXIETY
     Route: 048
  5. SEROQUEL XR [Suspect]
     Indication: ANXIETY
     Route: 048
  6. SEROQUEL XR [Suspect]
     Indication: DEPRESSION
     Route: 048
  7. ADDERALL 5 [Concomitant]
     Indication: ATTENTION DEFICIT/HYPERACTIVITY DISORDER
  8. SEROQUEL XR [Suspect]
     Indication: POST-TRAUMATIC STRESS DISORDER
     Route: 048
  9. BUPROPION HCL [Concomitant]
     Indication: DEPRESSION
     Route: 048

REACTIONS (3)
  - OFF LABEL USE [None]
  - WEIGHT INCREASED [None]
  - THERAPEUTIC RESPONSE UNEXPECTED [None]
